FAERS Safety Report 15973692 (Version 1)
Quarter: 2019Q1

REPORT INFORMATION
  Report Type: Spontaneous
  Country: CA (occurrence: CA)
  Receive Date: 20190217
  Receipt Date: 20190217
  Transmission Date: 20190418
  Serious: Yes (Hospitalization, Other)
  Sender: FDA-Public Use
  Company Number: CA-IMPAX LABORATORIES, LLC-2018-IPXL-04016

PATIENT
  Age: 8 Year
  Sex: Female
  Weight: 27.4 kg

DRUGS (7)
  1. GUANFACINE. [Suspect]
     Active Substance: GUANFACINE
     Dosage: 3 MILLIGRAM, DAILY
     Route: 065
  2. GUANFACINE. [Suspect]
     Active Substance: GUANFACINE
     Dosage: 2 MILLIGRAM, DAILY
     Route: 065
  3. GUANFACINE. [Suspect]
     Active Substance: GUANFACINE
     Dosage: 3 MILLIGRAM
     Route: 065
  4. GUANFACINE. [Suspect]
     Active Substance: GUANFACINE
     Indication: ATTENTION DEFICIT/HYPERACTIVITY DISORDER
     Dosage: 3 MILLIGRAM, DAILY
     Route: 065
  5. GUANFACINE. [Suspect]
     Active Substance: GUANFACINE
     Dosage: 1 MILLIGRAM, DAILY
     Route: 065
  6. ARIPIPRAZOLE. [Concomitant]
     Active Substance: ARIPIPRAZOLE
     Indication: OPPOSITIONAL DEFIANT DISORDER
     Dosage: 2 MILLIGRAM, DAILY
     Route: 065
  7. ARIPIPRAZOLE. [Concomitant]
     Active Substance: ARIPIPRAZOLE
     Indication: ATTENTION DEFICIT/HYPERACTIVITY DISORDER

REACTIONS (10)
  - Electrocardiogram QT shortened [Recovering/Resolving]
  - Bradycardia [Recovering/Resolving]
  - Bradypnoea [Recovering/Resolving]
  - Atrioventricular dissociation [Recovering/Resolving]
  - Autonomic nervous system imbalance [Recovering/Resolving]
  - Hypotension [Recovering/Resolving]
  - Pain in extremity [Recovering/Resolving]
  - Somnolence [Recovering/Resolving]
  - Dizziness [Recovering/Resolving]
  - Respiratory acidosis [Recovering/Resolving]
